FAERS Safety Report 21577246 (Version 1)
Quarter: 2022Q4

REPORT INFORMATION
  Report Type: Other
  Country: CA (occurrence: CA)
  Receive Date: 20221110
  Receipt Date: 20221110
  Transmission Date: 20230113
  Serious: Yes (Other)
  Sender: FDA-Public Use
  Company Number: CA-APOTEX-2022AP015022

PATIENT
  Age: 77 Year
  Sex: Male

DRUGS (28)
  1. PROPRANOLOL [Suspect]
     Active Substance: PROPRANOLOL HYDROCHLORIDE
     Indication: Parkinsonian rest tremor
     Dosage: UNK
     Route: 065
  2. PROPRANOLOL [Suspect]
     Active Substance: PROPRANOLOL HYDROCHLORIDE
     Indication: Parkinson^s disease
  3. PROPRANOLOL [Suspect]
     Active Substance: PROPRANOLOL HYDROCHLORIDE
     Indication: Head titubation
  4. CLONAZEPAM [Suspect]
     Active Substance: CLONAZEPAM
     Indication: Parkinsonian rest tremor
     Dosage: UNK
     Route: 065
  5. CLONAZEPAM [Suspect]
     Active Substance: CLONAZEPAM
     Indication: Parkinson^s disease
  6. CLONAZEPAM [Suspect]
     Active Substance: CLONAZEPAM
     Indication: Head titubation
  7. GABAPENTIN [Suspect]
     Active Substance: GABAPENTIN
     Indication: Parkinsonian rest tremor
     Dosage: UNK
     Route: 065
  8. GABAPENTIN [Suspect]
     Active Substance: GABAPENTIN
     Indication: Parkinson^s disease
  9. GABAPENTIN [Suspect]
     Active Substance: GABAPENTIN
     Indication: Head titubation
  10. PRAMIPEXOLE [Suspect]
     Active Substance: PRAMIPEXOLE
     Indication: Parkinsonian rest tremor
     Dosage: 1 MILLIGRAM, TID
     Route: 065
  11. PRAMIPEXOLE [Suspect]
     Active Substance: PRAMIPEXOLE
     Indication: Parkinson^s disease
  12. PRAMIPEXOLE [Suspect]
     Active Substance: PRAMIPEXOLE
     Indication: Head titubation
  13. PRIMIDONE [Suspect]
     Active Substance: PRIMIDONE
     Indication: Parkinsonian rest tremor
     Dosage: UNK
     Route: 065
  14. PRIMIDONE [Suspect]
     Active Substance: PRIMIDONE
     Indication: Parkinson^s disease
  15. PRIMIDONE [Suspect]
     Active Substance: PRIMIDONE
     Indication: Head titubation
  16. ROPINIROLE [Suspect]
     Active Substance: ROPINIROLE
     Indication: Parkinsonian rest tremor
     Dosage: UNK
     Route: 065
  17. ROPINIROLE [Suspect]
     Active Substance: ROPINIROLE
     Indication: Parkinson^s disease
  18. ROPINIROLE [Suspect]
     Active Substance: ROPINIROLE
     Indication: Head titubation
  19. AMANTADINE [Suspect]
     Active Substance: AMANTADINE
     Indication: Parkinsonian rest tremor
     Dosage: 100 MILLIGRAM, QD
     Route: 065
  20. AMANTADINE [Suspect]
     Active Substance: AMANTADINE
     Indication: Parkinson^s disease
     Dosage: 200 MILLIGRAM, QD
     Route: 065
  21. AMANTADINE [Suspect]
     Active Substance: AMANTADINE
     Indication: Head titubation
  22. BENSERAZIDE HYDROCHLORIDE\LEVODOPA [Suspect]
     Active Substance: BENSERAZIDE HYDROCHLORIDE\LEVODOPA
     Indication: Parkinson^s disease
     Dosage: UNK, TID
     Route: 065
  23. ETHOPROPAZINE [Concomitant]
     Active Substance: ETHOPROPAZINE
     Indication: Parkinsonian rest tremor
     Dosage: UNK
     Route: 065
  24. ETHOPROPAZINE [Concomitant]
     Active Substance: ETHOPROPAZINE
     Indication: Parkinson^s disease
  25. ETHOPROPAZINE [Concomitant]
     Active Substance: ETHOPROPAZINE
     Indication: Head titubation
  26. TRIHEXYPHENIDYL [Concomitant]
     Active Substance: TRIHEXYPHENIDYL
     Indication: Parkinsonian rest tremor
     Dosage: 2 MILLIGRAM, TID
     Route: 065
  27. TRIHEXYPHENIDYL [Concomitant]
     Active Substance: TRIHEXYPHENIDYL
     Indication: Parkinson^s disease
  28. TRIHEXYPHENIDYL [Concomitant]
     Active Substance: TRIHEXYPHENIDYL
     Indication: Head titubation

REACTIONS (4)
  - Oedema peripheral [Unknown]
  - Off label use [Unknown]
  - Hallucination [Unknown]
  - Somnolence [Unknown]
